FAERS Safety Report 5665118-4 (Version None)
Quarter: 2008Q1

REPORT INFORMATION
  Report Type: 
  Country: None (occurrence: None)
  Receive Date: 20080314
  Receipt Date: 20080304
  Transmission Date: 20080703
  Serious: Yes (Other)
  Sender: FDA-Public Use
  Company Number: AU-PFIZER INC-2008021183

PATIENT
  Sex: Male

DRUGS (2)
  1. SUTENT [Suspect]
  2. DILANTIN [Suspect]

REACTIONS (5)
  - ASTHENIA [None]
  - ATAXIA [None]
  - LEUKOENCEPHALOPATHY [None]
  - LOSS OF CONTROL OF LEGS [None]
  - TUMOUR HAEMORRHAGE [None]
